FAERS Safety Report 12180916 (Version 2)
Quarter: 2016Q3

REPORT INFORMATION
  Report Type: Spontaneous
  Country: US (occurrence: US)
  Receive Date: 20160315
  Receipt Date: 20160907
  Transmission Date: 20161109
  Serious: No
  Sender: FDA-Public Use
  Company Number: US-JNJFOC-20160312579

PATIENT
  Sex: Male
  Weight: 82.56 kg

DRUGS (1)
  1. DURAGESIC [Suspect]
     Active Substance: FENTANYL
     Indication: PAIN
     Route: 062
     Dates: start: 20160302

REACTIONS (4)
  - Thinking abnormal [Not Recovered/Not Resolved]
  - Product packaging quantity issue [Unknown]
  - Drug dose omission [Unknown]
  - Product tampering [Unknown]

NARRATIVE: CASE EVENT DATE: 20160302
